FAERS Safety Report 9999119 (Version 1)
Quarter: 2014Q1

REPORT INFORMATION
  Report Type: Spontaneous
  Country: US (occurrence: None)
  Receive Date: 20140311
  Receipt Date: 20140311
  Transmission Date: 20141002
  Serious: Yes (Hospitalization)
  Sender: FDA-Public Use
  Company Number: None

PATIENT
  Age: 56 Year
  Sex: Male
  Weight: 99.79 kg

DRUGS (1)
  1. VICTOZA [Suspect]
     Indication: TYPE 2 DIABETES MELLITUS
     Dosage: GIVEN INTO/UNDER THE SKIN
     Dates: start: 20120530, end: 20130606

REACTIONS (2)
  - Dyspnoea [None]
  - Papillary thyroid cancer [None]
